FAERS Safety Report 20563381 (Version 1)
Quarter: 2022Q1

REPORT INFORMATION
  Report Type: Spontaneous
  Country: US (occurrence: US)
  Receive Date: 20220308
  Receipt Date: 20220308
  Transmission Date: 20220424
  Serious: No
  Sender: FDA-Public Use
  Company Number: US-PFIZER INC-202200342106

PATIENT

DRUGS (3)
  1. THROMBIN-JMI [Suspect]
     Active Substance: THROMBIN
     Dosage: UNK
  2. THROMBIN-JMI [Suspect]
     Active Substance: THROMBIN
     Dosage: UNK
  3. GELFOAM [Concomitant]
     Active Substance: GELATIN\THROMBIN HUMAN
     Dosage: UNK
     Route: 061

REACTIONS (1)
  - Product solubility abnormal [Unknown]
